FAERS Safety Report 9009458 (Version 1)
Quarter: 2013Q1

REPORT INFORMATION
  Report Type: Spontaneous
  Country: CA (occurrence: CA)
  Receive Date: 20130112
  Receipt Date: 20130112
  Transmission Date: 20140127
  Serious: Yes (Other)
  Sender: FDA-Public Use
  Company Number: CA-AMGEN-CANSP2013000395

PATIENT
  Age: 84 Year
  Sex: Female
  Weight: 33.18 kg

DRUGS (1)
  1. PROLIA [Suspect]
     Indication: OSTEOPOROSIS
     Dosage: UNK
     Dates: start: 20120614

REACTIONS (5)
  - Suicidal ideation [Unknown]
  - Mental impairment [Unknown]
  - Confusional state [Unknown]
  - Disorientation [Unknown]
  - Malaise [Unknown]
